FAERS Safety Report 6112966-2 (Version None)
Quarter: 2009Q1

REPORT INFORMATION
  Report Type: 
  Country: None (occurrence: None)
  Receive Date: 20090312
  Receipt Date: 20090309
  Transmission Date: 20090719
  Serious: Yes (Other)
  Sender: FDA-Public Use
  Company Number: US-TEVA-185571USA

PATIENT
  Sex: Male
  Weight: 86.26 kg

DRUGS (1)
  1. AZILECT [Suspect]
     Route: 048

REACTIONS (1)
  - TENDON RUPTURE [None]
